FAERS Safety Report 11363895 (Version 1)
Quarter: 2015Q3

REPORT INFORMATION
  Report Type: Spontaneous
  Country: US (occurrence: None)
  Receive Date: 20150810
  Receipt Date: 20150810
  Transmission Date: 20151125
  Serious: Yes (Other)
  Sender: FDA-Public Use
  Company Number: None

PATIENT
  Age: 30 Year
  Sex: Female
  Weight: 77.11 kg

DRUGS (1)
  1. ALEVE [Suspect]
     Active Substance: NAPROXEN SODIUM
     Dosage: ONE PILL
     Route: 048

REACTIONS (4)
  - Balance disorder [None]
  - Underdose [None]
  - Feeling abnormal [None]
  - Gait disturbance [None]

NARRATIVE: CASE EVENT DATE: 20140813
